FAERS Safety Report 9631349 (Version 2)
Quarter: 2014Q4

REPORT INFORMATION
  Report Type: Spontaneous
  Country: DE (occurrence: None)
  Receive Date: 20131015
  Receipt Date: 20141001
  Transmission Date: 20150529
  Serious: Yes (Hospitalization, Other)
  Sender: FDA-Public Use
  Company Number: 1310-1257

PATIENT
  Age: 77 Year
  Sex: Male

DRUGS (1)
  1. EYLEA [Suspect]
     Active Substance: AFLIBERCEPT
     Indication: AGE-RELATED MACULAR DEGENERATION
     Dosage: Q1MON, OPTHALMIC
     Route: 047
     Dates: start: 20130829

REACTIONS (4)
  - Lung infection [None]
  - Colour blindness acquired [None]
  - Eye haemorrhage [None]
  - Chromatopsia [None]

NARRATIVE: CASE EVENT DATE: 20130914
